FAERS Safety Report 10994778 (Version 1)
Quarter: 2015Q2

REPORT INFORMATION
  Report Type: Spontaneous
  Country: US (occurrence: None)
  Receive Date: 20150406
  Receipt Date: 20150406
  Transmission Date: 20150821
  Serious: Yes (Life-Threatening, Disabling, Other)
  Sender: FDA-Public Use
  Company Number: None

PATIENT
  Age: 83 Year
  Sex: Female
  Weight: 53.98 kg

DRUGS (1)
  1. LEVEMIR [Suspect]
     Active Substance: INSULIN DETEMIR
     Indication: DIABETES MELLITUS
     Dosage: INJECT EVERY 12 HOURS AS DIREC
     Route: 058

REACTIONS (4)
  - Device issue [None]
  - Blood glucose increased [None]
  - Blood glucose fluctuation [None]
  - Product substitution issue [None]

NARRATIVE: CASE EVENT DATE: 20150101
